FAERS Safety Report 5657862-X (Version None)
Quarter: 2008Q1

REPORT INFORMATION
  Report Type: 
  Country: None (occurrence: None)
  Receive Date: 20080310
  Receipt Date: 20080305
  Transmission Date: 20080703
  Serious: Yes (Death)
  Sender: FDA-Public Use
  Company Number: GB-MERCK-0706GBR00081

PATIENT
  Age: 35 Year
  Sex: Male

DRUGS (4)
  1. CANCIDAS [Suspect]
     Route: 065
  2. ACYCLOVIR [Concomitant]
     Route: 065
  3. CIDOFOVIR [Concomitant]
     Route: 065
  4. CYCLOSPORINE [Concomitant]
     Route: 065

REACTIONS (2)
  - DRUG INEFFECTIVE [None]
  - HISTIOCYTOSIS HAEMATOPHAGIC [None]
